FAERS Safety Report 5217871-1 (Version None)
Quarter: 2007Q1

REPORT INFORMATION
  Report Type: 
  Country: None (occurrence: None)
  Receive Date: 20061130
  Receipt Date: 20060720
  Transmission Date: 20070707
  Serious: Yes (Hospitalization)
  Sender: FDA-Public Use
  Company Number: US200607004280

PATIENT
  Age: 44 Year
  Sex: Male
  Weight: 110.2 kg

DRUGS (5)
  1. ZYPREXA [Suspect]
     Dosage: 10 MG ; 20 MG
     Dates: start: 20000201, end: 20050601
  2. ARIPIPRAZOLE [Concomitant]
  3. RISPERDAL /SWE/ (RISPERIDONE) [Concomitant]
  4. PAXIL [Concomitant]
  5. HALDOL SOLUTAB [Concomitant]

REACTIONS (4)
  - DIABETES MELLITUS [None]
  - HYPERPHAGIA [None]
  - OBESITY [None]
  - POLYURIA [None]
